FAERS Safety Report 4523999-1 (Version None)
Quarter: 2004Q4

REPORT INFORMATION
  Report Type: 
  Country: None (occurrence: None)
  Receive Date: 20041209
  Receipt Date: 20041123
  Transmission Date: 20050328
  Serious: Yes (Hospitalization)
  Sender: FDA-Public Use
  Company Number: F01200403723

PATIENT
  Age: 57 Year
  Sex: Female

DRUGS (6)
  1. OXALIPLATIN - SOLUTION - 208 MG [Suspect]
     Indication: COLORECTAL CANCER METASTATIC
     Dosage: 208 MG Q3W INTRAVENOUS NOS
     Route: 042
     Dates: start: 20041117, end: 20041117
  2. CAPECITABINE - TABLET - 1650 MG [Suspect]
     Dosage: 1650 MG TWICE DAILY FOR 2 WEEKS, Q3W ORAL
     Route: 048
     Dates: start: 20041117, end: 20041117
  3. BEVACIZUMAB OR PLACEBO - SOLUTION - 487.5 MG [Suspect]
     Dosage: 487.5 MG Q3W INTRAVENOUS NOS
     Route: 042
     Dates: start: 20041117, end: 20041117
  4. TROPISETRON [Concomitant]
  5. DEXAMETHASONE [Concomitant]
  6. RANITIDINE [Concomitant]

REACTIONS (1)
  - LARYNGOSPASM [None]
